FAERS Safety Report 6564434-1 (Version None)
Quarter: 2010Q1

REPORT INFORMATION
  Report Type: 
  Country: None (occurrence: None)
  Receive Date: 20100201
  Receipt Date: 20100127
  Transmission Date: 20100710
  Serious: Yes (Hospitalization)
  Sender: FDA-Public Use
  Company Number: US-B.I. PHARMACEUTICALS,INC./RIDGEFIELD-2010-BP-01053BP

PATIENT
  Sex: Female

DRUGS (6)
  1. SPIRIVA [Suspect]
     Indication: BRONCHITIS CHRONIC
     Dosage: 18 MCG
     Route: 055
     Dates: start: 20091116, end: 20091121
  2. LISINOPRIL [Concomitant]
     Indication: HYPERTENSION
  3. PLAVIX [Concomitant]
     Indication: NERVOUS SYSTEM DISORDER
     Dosage: 40 MG
  4. AMLODIPINE [Concomitant]
     Indication: HYPERTENSION
     Dosage: 5 MG
  5. ECOTRIN [Concomitant]
     Indication: PROPHYLAXIS
     Dosage: 81 MG
  6. LASIX [Concomitant]
     Indication: FLUID RETENTION
     Dosage: 40 MG

REACTIONS (2)
  - GLOSSODYNIA [None]
  - HEART RATE DECREASED [None]
